FAERS Safety Report 20429785 (Version 1)
Quarter: 2022Q1

REPORT INFORMATION
  Report Type: Spontaneous
  Country: US (occurrence: None)
  Receive Date: 20220203
  Receipt Date: 20220203
  Transmission Date: 20220423
  Serious: Yes (Life-Threatening)
  Sender: FDA-Public Use
  Company Number: None

PATIENT
  Age: 64 Year
  Sex: Male
  Weight: 116.1 kg

DRUGS (2)
  1. SOTROVIMAB [Suspect]
     Active Substance: SOTROVIMAB
     Indication: COVID-19
     Dosage: OTHER FREQUENCY : ONE TIME DOSE;?
     Route: 042
  2. Sotroviamab [Concomitant]
     Dates: start: 20220203, end: 20220203

REACTIONS (5)
  - Infusion related reaction [None]
  - Unresponsive to stimuli [None]
  - Pulse absent [None]
  - Apnoea [None]
  - Presyncope [None]

NARRATIVE: CASE EVENT DATE: 20220203
